FAERS Safety Report 16763292 (Version 4)
Quarter: 2020Q2

REPORT INFORMATION
  Report Type: Spontaneous
  Country: FR (occurrence: FR)
  Receive Date: 20190902
  Receipt Date: 20200421
  Transmission Date: 20200713
  Serious: Yes (Hospitalization, Other)
  Sender: FDA-Public Use
  Company Number: FR-SPARK THERAPEUTICS, INC.-FR-SPK-19-00035

PATIENT
  Age: 23 Year
  Sex: Male

DRUGS (4)
  1. LUXTURNA [Suspect]
     Active Substance: VORETIGENE NEPARVOVEC-RZYL
     Dates: start: 20190709, end: 20190709
  2. LUXTURNA [Suspect]
     Active Substance: VORETIGENE NEPARVOVEC-RZYL
     Indication: LEBER^S CONGENITAL AMAUROSIS
     Dates: start: 20190702, end: 20190702
  3. LUXTURNA [Suspect]
     Active Substance: VORETIGENE NEPARVOVEC-RZYL
     Indication: LEBER^S CONGENITAL AMAUROSIS
     Route: 031
     Dates: start: 20190702, end: 20190702
  4. LUXTURNA [Suspect]
     Active Substance: VORETIGENE NEPARVOVEC-RZYL
     Dates: start: 20190709, end: 20190709

REACTIONS (4)
  - Disease progression [Unknown]
  - Retinal detachment [Unknown]
  - Chorioretinal folds [Recovered/Resolved with Sequelae]
  - Visual impairment [Recovering/Resolving]

NARRATIVE: CASE EVENT DATE: 20190703
